FAERS Safety Report 9819192 (Version 1)
Quarter: 2014Q1

REPORT INFORMATION
  Report Type: Spontaneous
  Country: FR (occurrence: None)
  Receive Date: 20140113
  Receipt Date: 20140113
  Transmission Date: 20141002
  Serious: Yes (Hospitalization)
  Sender: FDA-Public Use
  Company Number: FR-JNJFOC-20140101796

PATIENT
  Age: 74 Year
  Sex: Male

DRUGS (9)
  1. DACOGEN [Suspect]
     Indication: CHRONIC MYELOMONOCYTIC LEUKAEMIA
     Route: 042
     Dates: start: 20130605
  2. BECILAN (PYRIDOXINE HYDROCHLORIDE) TABLET [Concomitant]
  3. BEVITINE (THIAMINE HYDROCHLORIDE) TABLET [Concomitant]
  4. DURAGESIC (FENTANYL) PATCH [Concomitant]
  5. ORAMORPH (MORPHINE SULFATE) SOLUTION [Concomitant]
  6. PARACETAMOL (PARACETAMOL) TABLET [Concomitant]
  7. TRANSIPEG (MACROGOL) SACHET [Concomitant]
  8. ZOLOFT (SERTRALINE) UNSPECIFIED [Concomitant]
  9. OGASTORO (LASOPRAZOLE) TABLET [Concomitant]

REACTIONS (8)
  - Off label use [None]
  - Weight decreased [None]
  - Asthenia [None]
  - Epistaxis [None]
  - Thrombocytopenia [None]
  - Anaemia [None]
  - Malnutrition [None]
  - General physical health deterioration [None]
